FAERS Safety Report 11556494 (Version 2)
Quarter: 2015Q3

REPORT INFORMATION
  Report Type: Spontaneous
  Country: US (occurrence: US)
  Receive Date: 20150925
  Receipt Date: 20150925
  Transmission Date: 20151125
  Serious: No
  Sender: FDA-Public Use
  Company Number: US-WATSON-2015-16885

PATIENT
  Age: 74 Year
  Sex: Male

DRUGS (1)
  1. RECTIV [Suspect]
     Active Substance: NITROGLYCERIN
     Indication: ANAL FISSURE
     Dosage: 1 INCH EVERY TWELVE HOURS AS NEEDED
     Route: 054
     Dates: start: 20150525, end: 20150628

REACTIONS (3)
  - Facial pain [Recovered/Resolved]
  - Photosensitivity reaction [Recovered/Resolved]
  - Hyperacusis [Recovered/Resolved]

NARRATIVE: CASE EVENT DATE: 20150525
